FAERS Safety Report 7055100-7 (Version None)
Quarter: 2010Q4

REPORT INFORMATION
  Report Type: 
  Country: None (occurrence: None)
  Receive Date: 20101021
  Receipt Date: 20101014
  Transmission Date: 20110411
  Serious: Yes (Death, Hospitalization, Other)
  Sender: FDA-Public Use
  Company Number: FR-CELGENEUS-056-21880-10101426

PATIENT
  Sex: Female

DRUGS (2)
  1. REVLIMID [Suspect]
     Route: 048
     Dates: start: 20100805
  2. ASPIRIN [Concomitant]
     Indication: THROMBOSIS PROPHYLAXIS
     Route: 065

REACTIONS (2)
  - FEBRILE NEUTROPENIA [None]
  - PULMONARY EMBOLISM [None]
